FAERS Safety Report 7177284-2 (Version None)
Quarter: 2010Q4

REPORT INFORMATION
  Report Type: 
  Country: None (occurrence: None)
  Receive Date: 20101220
  Receipt Date: 20101207
  Transmission Date: 20110411
  Serious: Yes (Other)
  Sender: FDA-Public Use
  Company Number: US-ELI_LILLY_AND_COMPANY-US201009004462

PATIENT
  Age: 67 Year
  Sex: Female

DRUGS (12)
  1. FORTEO [Suspect]
     Dosage: UNK, UNKNOWN
     Dates: start: 20091218, end: 20100913
  2. CALCIUM [Concomitant]
     Dosage: UNK, DAILY (1/D)
     Route: 048
  3. TEMAZEPAM [Concomitant]
     Dosage: UNK, UNKNOWN
     Route: 048
  4. CITALOPRAM [Concomitant]
     Dosage: 10 MG, DAILY (1/D)
     Route: 065
  5. BENZONATATE [Concomitant]
     Indication: COUGH
     Dosage: 200 MG, 3/D
     Route: 065
  6. VITAMIN E [Concomitant]
     Dosage: UNK, UNKNOWN
     Route: 065
  7. FISH OIL [Concomitant]
     Dosage: UNK, DAILY (1/D)
     Route: 048
  8. GAS-X [Concomitant]
     Dosage: UNK, UNKNOWN
     Route: 048
  9. SENNALAX /00571901/ [Concomitant]
     Dosage: UNK, UNKNOWN
     Route: 065
  10. ACETAMINOPHEN [Concomitant]
     Indication: PAIN
     Dosage: UNK, EVERY 4 HRS
     Route: 065
  11. MULTI-VITAMIN [Concomitant]
     Dosage: UNK, UNKNOWN
     Route: 065
  12. ARIMIDEX [Concomitant]
     Dosage: UNK, UNKNOWN
     Route: 065

REACTIONS (1)
  - BREAST CANCER [None]
